FAERS Safety Report 8433090-X (Version None)
Quarter: 2012Q2

REPORT INFORMATION
  Report Type: 
  Country: None (occurrence: None)
  Receive Date: 20120613
  Receipt Date: 20120608
  Transmission Date: 20120825
  Serious: Yes (Other)
  Sender: FDA-Public Use
  Company Number: PHHY2012FR047480

PATIENT
  Sex: Male

DRUGS (7)
  1. RASILEZ HCT [Suspect]
     Indication: HYPERTENSION
     Dates: start: 20110501
  2. AMLODIPINE [Concomitant]
     Indication: HYPERTENSION
     Dates: start: 20110501, end: 20110601
  3. ASPEGIC 1000 [Concomitant]
  4. BISOPROLOL FUMARATE [Concomitant]
     Indication: HYPERTENSION
     Dates: start: 20110501
  5. CRESTOR [Concomitant]
  6. LOSARTAN POTASSIUM AND HYDROCHLOROTHIAZIDE [Concomitant]
  7. CALDINE [Concomitant]
     Indication: HYPERTENSION
     Dates: start: 20110601

REACTIONS (3)
  - MASS [None]
  - PAIN [None]
  - MASTITIS [None]
